FAERS Safety Report 6806930-5 (Version None)
Quarter: 2010Q2

REPORT INFORMATION
  Report Type: 
  Country: None (occurrence: None)
  Receive Date: 20100629
  Receipt Date: 20080613
  Transmission Date: 20101027
  Serious: No
  Sender: FDA-Public Use
  Company Number: US-PFIZER INC-2008050469

PATIENT
  Sex: Male
  Weight: 79.38 kg

DRUGS (4)
  1. XANAX [Suspect]
     Indication: PANIC ATTACK
     Dosage: 1-2MG
     Route: 048
     Dates: start: 20000101
  2. PROVIGIL [Suspect]
     Indication: NARCOLEPSY
     Route: 048
     Dates: start: 20070101, end: 20080506
  3. ZOLOFT [Concomitant]
     Dates: start: 20050101
  4. METHADONE [Concomitant]
     Dates: start: 20010701

REACTIONS (2)
  - PANIC ATTACK [None]
  - SPEECH DISORDER [None]
